FAERS Safety Report 19649479 (Version 1)
Quarter: 2021Q3

REPORT INFORMATION
  Report Type: Spontaneous
  Country: US (occurrence: US)
  Receive Date: 20210803
  Receipt Date: 20210803
  Transmission Date: 20211014
  Serious: Yes (Other)
  Sender: FDA-Public Use
  Company Number: US-DRREDDYS-SPO/USA/21/0138453

PATIENT
  Age: 20 Year
  Sex: Female

DRUGS (1)
  1. ACCUTANE [Suspect]
     Active Substance: ISOTRETINOIN
     Indication: PRODUCT USED FOR UNKNOWN INDICATION
     Dosage: RMA ISSUE DATE: 12/APRIL/2021 6:25:50 PM, 12/APRIL/2021 6:34:57 PM,17/MAY/2021 5:14:41 PM, 17/MAY/20

REACTIONS (2)
  - Mood altered [Unknown]
  - Dry skin [Unknown]
